FAERS Safety Report 19875167 (Version 1)
Quarter: 2021Q3

REPORT INFORMATION
  Report Type: Spontaneous
  Country: FR (occurrence: FR)
  Receive Date: 20210923
  Receipt Date: 20210923
  Transmission Date: 20211014
  Serious: Yes (Hospitalization, Other)
  Sender: FDA-Public Use
  Company Number: FR-GALDERMA-FR2021016660

PATIENT

DRUGS (10)
  1. BETAMETHASONE DIPROPIONATE. [Concomitant]
     Active Substance: BETAMETHASONE DIPROPIONATE
     Indication: SKIN DISORDER
     Dosage: UNK
  2. HYDROCORTISONE. [Concomitant]
     Active Substance: HYDROCORTISONE
     Indication: ECZEMA
     Route: 061
  3. DESONIDE. [Suspect]
     Active Substance: DESONIDE
     Indication: ECZEMA
     Dosage: 1 DOSAGE FORM
     Route: 061
  4. CLOBETASOL PROPIONATE. [Suspect]
     Active Substance: CLOBETASOL PROPIONATE
     Indication: ECZEMA
     Dosage: 1 DOSAGE FORM
     Route: 065
  5. HYDROCORTISONE. [Suspect]
     Active Substance: HYDROCORTISONE
     Indication: ECZEMA
     Dosage: 1 DOSAGE FORM
     Route: 061
  6. MOMETASONE FUROATE. [Concomitant]
     Active Substance: MOMETASONE FUROATE
     Indication: SKIN DISORDER
     Dosage: 1 UNK
  7. BETAMETHASONE DIPROPIONATE. [Concomitant]
     Active Substance: BETAMETHASONE DIPROPIONATE
     Indication: ECZEMA
  8. BETAMETHASONE. [Concomitant]
     Active Substance: BETAMETHASONE
     Indication: ECZEMA
     Route: 061
  9. MOMETASONE FUROATE. [Concomitant]
     Active Substance: MOMETASONE FUROATE
     Indication: ECZEMA
  10. DESONIDE. [Suspect]
     Active Substance: DESONIDE
     Indication: SKIN DISORDER

REACTIONS (5)
  - Cushing^s syndrome [Recovered/Resolved]
  - Product use in unapproved indication [Recovered/Resolved]
  - Hypertension [Recovered/Resolved]
  - Product use issue [Recovered/Resolved]
  - Condition aggravated [Recovered/Resolved]
